FAERS Safety Report 26097933 (Version 1)
Quarter: 2025Q4

REPORT INFORMATION
  Report Type: Spontaneous
  Country: EU (occurrence: EU)
  Receive Date: 20251127
  Receipt Date: 20251127
  Transmission Date: 20260117
  Serious: Yes (Life-Threatening, Other)
  Sender: CHEPLAPHARM
  Company Number: None

PATIENT
  Age: 81 Year
  Sex: Female

DRUGS (12)
  1. OLANZAPINE [Suspect]
     Active Substance: OLANZAPINE
     Indication: Depression
     Dosage: OLANZAPINE 5MG 0.5 TABLET IN THE EVENING
     Route: 048
     Dates: start: 20251030, end: 20251102
  2. OLANZAPINE [Suspect]
     Active Substance: OLANZAPINE
     Indication: Depression
     Dosage: OLANZAPINE 2.5MG IN THE EVENING
     Route: 048
  3. OXAZEPAM [Suspect]
     Active Substance: OXAZEPAM
     Indication: Depression
     Dosage: SERESTA 10MG 1 TABLET EVERY 6 HOURS AS NEEDED, MAX 3 TABLETS/DAY
     Route: 048
     Dates: start: 20251030, end: 20251102
  4. OXAZEPAM [Suspect]
     Active Substance: OXAZEPAM
     Indication: Depression
     Dosage: IF NECESSARY AT 5 MG
     Route: 048
  5. MIANSERIN [Suspect]
     Active Substance: MIANSERIN
     Dosage: 10MG 1 TABLET IN THE EVENING
  6. REFRESH CELLUVISC [Suspect]
     Active Substance: CARBOXYMETHYLCELLULOSE SODIUM
     Dosage: 1% 1 DROP MORNING, NOON, AND EVENING IN EACH EYE
     Route: 031
  7. POLYETHYLENE GLYCOLS [Suspect]
     Active Substance: POLYETHYLENE GLYCOLS
     Dosage: 10G 1 SACHET AS NEEDED
  8. CHOLECALCIFEROL [Suspect]
     Active Substance: CHOLECALCIFEROL
     Dosage: 50,000 IU 1 AMPOULE PER WEEK
  9. LERCANIDIPINE [Suspect]
     Active Substance: LERCANIDIPINE
     Dosage: 10MG 1 TABLET IN THE MORNING
  10. KEPPRA [Suspect]
     Active Substance: LEVETIRACETAM
     Indication: Confusional state
  11. LAMICTAL [Suspect]
     Active Substance: LAMOTRIGINE
     Indication: Confusional state
  12. RISPERDAL [Suspect]
     Active Substance: RISPERIDONE
     Indication: Depression

REACTIONS (3)
  - Coma [Recovered/Resolved]
  - Hypotension [Unknown]
  - Headache [Recovered/Resolved]

NARRATIVE: CASE EVENT DATE: 20251102
